FAERS Safety Report 18513162 (Version 1)
Quarter: 2020Q4

REPORT INFORMATION
  Report Type: Spontaneous
  Country: CN (occurrence: CN)
  Receive Date: 20201117
  Receipt Date: 20201117
  Transmission Date: 20210114
  Serious: Yes (Death)
  Sender: FDA-Public Use
  Company Number: CN-GUERBET-CN-20200186

PATIENT
  Age: 65 Year
  Sex: Male

DRUGS (4)
  1. LOBAPLATIN [Concomitant]
     Active Substance: LOBAPLATIN
     Indication: TRANSCATHETER ARTERIAL CHEMOEMBOLISATION
     Route: 013
  2. PIRARUBICIN [Concomitant]
     Active Substance: PIRARUBICIN
     Indication: TRANSCATHETER ARTERIAL CHEMOEMBOLISATION
     Route: 013
  3. RALTITREXED [Concomitant]
     Active Substance: RALTITREXED
     Indication: TRANSCATHETER ARTERIAL CHEMOEMBOLISATION
     Route: 013
  4. LIPIODOL [Suspect]
     Active Substance: ETHIODIZED OIL
     Indication: TRANSCATHETER ARTERIAL CHEMOEMBOLISATION
     Route: 013

REACTIONS (4)
  - Acute respiratory distress syndrome [Fatal]
  - Acute kidney injury [Fatal]
  - Clostridial infection [Fatal]
  - Haemolysis [Fatal]
